APPROVED DRUG PRODUCT: ROFLUMILAST
Active Ingredient: ROFLUMILAST
Strength: 250MCG
Dosage Form/Route: TABLET;ORAL
Application: A208236 | Product #002
Applicant: SENORES PHARMACEUTICALS INC
Approved: Oct 19, 2023 | RLD: No | RS: No | Type: DISCN